FAERS Safety Report 10240326 (Version 2)
Quarter: 2014Q2

REPORT INFORMATION
  Report Type: Report from Study
  Country: KR (occurrence: KR)
  Receive Date: 20140617
  Receipt Date: 20140625
  Transmission Date: 20141212
  Serious: Yes (Hospitalization)
  Sender: FDA-Public Use
  Company Number: KR-ROCHE-1419003

PATIENT
  Age: 71 Year
  Sex: Male
  Weight: 69 kg

DRUGS (6)
  1. CAPECITABINE [Suspect]
     Indication: GASTRIC CANCER
     Dosage: LAST DOSE PRIOR TO SAE ON 01/JUN/2014
     Route: 048
     Dates: start: 20140520
  2. CAPECITABINE [Suspect]
     Route: 048
     Dates: start: 20140618
  3. ERDOSTEINE [Concomitant]
     Route: 065
     Dates: start: 20140609, end: 20140616
  4. PANTOPRAZOLE SODIUM SESQUIHYDRATE [Concomitant]
     Route: 065
     Dates: start: 20140609, end: 20140616
  5. LACTOWEL [Concomitant]
     Route: 065
     Dates: start: 20140609, end: 20140616
  6. MUPIROCIN [Concomitant]
     Route: 065
     Dates: start: 20140602

REACTIONS (1)
  - Colitis [Recovering/Resolving]
